FAERS Safety Report 23896776 (Version 1)
Quarter: 2024Q2

REPORT INFORMATION
  Report Type: Spontaneous
  Country: US (occurrence: None)
  Receive Date: 20240524
  Receipt Date: 20240524
  Transmission Date: 20240716
  Serious: No
  Sender: FDA-Public Use
  Company Number: None

PATIENT
  Age: 52 Year
  Sex: Female

DRUGS (1)
  1. AVONEX PEN [Suspect]
     Active Substance: INTERFERON BETA-1A
     Indication: Multiple sclerosis
     Dosage: 30MCG ONCE A WEEK IM
     Route: 030
     Dates: start: 20181213

REACTIONS (2)
  - Nausea [None]
  - Injection site pain [None]

NARRATIVE: CASE EVENT DATE: 20240516
